FAERS Safety Report 21166836 (Version 1)
Quarter: 2022Q3

REPORT INFORMATION
  Report Type: Spontaneous
  Country: US (occurrence: US)
  Receive Date: 20220803
  Receipt Date: 20220803
  Transmission Date: 20221027
  Serious: No
  Sender: FDA-Public Use
  Company Number: US-SAREPTA THERAPEUTICS INC.-SRP2022-002327

PATIENT
  Age: 26 Year
  Sex: Male
  Weight: 39.002 kg

DRUGS (1)
  1. AMONDYS 45 [Suspect]
     Active Substance: CASIMERSEN
     Indication: Duchenne muscular dystrophy
     Dosage: 1400 MILLIGRAM, WEEKLY
     Route: 042
     Dates: start: 20220201

REACTIONS (2)
  - Wrong technique in product usage process [Unknown]
  - No adverse event [Unknown]

NARRATIVE: CASE EVENT DATE: 20220621
